FAERS Safety Report 8369448-7 (Version None)
Quarter: 2012Q1

REPORT INFORMATION
  Report Type: 
  Country: None (occurrence: None)
  Receive Date: 20120323
  Receipt Date: 20111118
  Transmission Date: 20120608
  Serious: Yes (Hospitalization)
  Sender: FDA-Public Use
  Company Number: 163-21880-11112867

PATIENT
  Age: 83 Year
  Sex: Male

DRUGS (5)
  1. DEXAMETHASONE [Concomitant]
  2. REVLIMID [Suspect]
     Indication: MULTIPLE MYELOMA
     Dosage: 15 MG, 1 IN 1 D, PO
     Route: 048
     Dates: start: 20110801
  3. FERROUS SULFATE TAB [Concomitant]
  4. ASPIRIN [Concomitant]
  5. ATENOLOL [Concomitant]

REACTIONS (1)
  - THROMBOSIS [None]
